FAERS Safety Report 4307212-6 (Version None)
Quarter: 2004Q1

REPORT INFORMATION
  Report Type: 
  Country: None (occurrence: None)
  Receive Date: 20040225
  Receipt Date: 20040218
  Transmission Date: 20041129
  Serious: Yes (Disabling)
  Sender: FDA-Public Use
  Company Number: 2004UW01179

PATIENT
  Sex: Male
  Weight: 84.369 kg

DRUGS (2)
  1. IRESSA [Suspect]
     Indication: LUNG NEOPLASM MALIGNANT
     Dosage: 500 MG DAILY PO
     Route: 048
     Dates: start: 20000117, end: 20000118
  2. LOTREL [Concomitant]

REACTIONS (1)
  - CEREBRAL ARTERY EMBOLISM [None]
